FAERS Safety Report 24848518 (Version 1)
Quarter: 2025Q1

REPORT INFORMATION
  Report Type: Report from Study
  Country: US (occurrence: US)
  Receive Date: 20250116
  Receipt Date: 20250116
  Transmission Date: 20250409
  Serious: Yes (Other)
  Sender: ABBVIE
  Company Number: US-ABBVIE-6084527

PATIENT

DRUGS (1)
  1. ELAGOLIX [Suspect]
     Active Substance: ELAGOLIX
     Indication: Maternal exposure timing unspecified

REACTIONS (8)
  - Neonatal respiratory distress syndrome [Unknown]
  - Foetal exposure during pregnancy [Unknown]
  - Poor weight gain neonatal [Unknown]
  - Serratia infection [Unknown]
  - Large for dates baby [Unknown]
  - Maternal condition affecting foetus [Unknown]
  - Premature baby [Unknown]
  - Skin laceration [Unknown]

NARRATIVE: CASE EVENT DATE: 20240519
